FAERS Safety Report 18963221 (Version 1)
Quarter: 2021Q1

REPORT INFORMATION
  Report Type: Spontaneous
  Country: US (occurrence: US)
  Receive Date: 20210303
  Receipt Date: 20210303
  Transmission Date: 20210420
  Serious: No
  Sender: FDA-Public Use
  Company Number: None

PATIENT
  Age: 18 Year
  Sex: Female
  Weight: 57 kg

DRUGS (17)
  1. ALBUTEROL. [Concomitant]
     Active Substance: ALBUTEROL
     Dates: start: 20210224
  2. CLOBAZAM. [Concomitant]
     Active Substance: CLOBAZAM
     Dates: start: 20210224
  3. LIDOCAINE PATCH [Concomitant]
     Active Substance: LIDOCAINE
     Dates: start: 20210203
  4. ONDANSETRON [Concomitant]
     Active Substance: ONDANSETRON
     Dates: start: 20210225
  5. CEFEPIME [Concomitant]
     Active Substance: CEFEPIME HYDROCHLORIDE
     Dates: start: 20210217
  6. HEPARIN [Concomitant]
     Active Substance: HEPARIN SODIUM
     Dates: start: 20210206
  7. HYDROCORTISONE. [Concomitant]
     Active Substance: HYDROCORTISONE
     Dates: start: 20210218
  8. QUETIAPINE. [Concomitant]
     Active Substance: QUETIAPINE
     Dates: start: 20210224
  9. VEKLURY [Suspect]
     Active Substance: REMDESIVIR
     Indication: COVID-19
     Dosage: ?          OTHER FREQUENCY:ONCE;?
     Route: 042
     Dates: start: 20210225, end: 20210226
  10. AMLODIPINE [Concomitant]
     Active Substance: AMLODIPINE BESYLATE
     Dates: start: 20210219
  11. CHLORHEXIDINE [Concomitant]
     Active Substance: CHLORHEXIDINE
     Dates: start: 20210201
  12. DEXAMETHASONE. [Concomitant]
     Active Substance: DEXAMETHASONE
     Dates: start: 20210224
  13. FOSCARNET [Concomitant]
     Active Substance: FOSCARNET
     Dates: start: 20210211
  14. LEVETIRACETAM. [Concomitant]
     Active Substance: LEVETIRACETAM
     Dates: start: 20210225
  15. NYSTATIN. [Concomitant]
     Active Substance: NYSTATIN
     Dates: start: 20210201
  16. PYRIDOXINE [Concomitant]
     Active Substance: PYRIDOXINE
     Dates: start: 20210201
  17. MICAFUNGIN. [Concomitant]
     Active Substance: MICAFUNGIN SODIUM
     Dates: start: 20210209

REACTIONS (2)
  - Aspartate aminotransferase increased [None]
  - Alanine aminotransferase increased [None]

NARRATIVE: CASE EVENT DATE: 20210225
